FAERS Safety Report 5934307-3 (Version None)
Quarter: 2008Q4

REPORT INFORMATION
  Report Type: 
  Country: None (occurrence: None)
  Receive Date: 20081029
  Receipt Date: 20081020
  Transmission Date: 20090506
  Serious: Yes (Hospitalization)
  Sender: FDA-Public Use
  Company Number: PHHY2008SG24378

PATIENT
  Age: 50 Year
  Sex: Female

DRUGS (1)
  1. ACLASTA [Suspect]
     Indication: OSTEOPOROSIS
     Dosage: 5 MG/DAY
     Route: 042
     Dates: start: 20081007

REACTIONS (6)
  - BONE PAIN [None]
  - HYPOAESTHESIA [None]
  - HYPOCALCAEMIA [None]
  - RASH [None]
  - RENAL IMPAIRMENT [None]
  - TETANY [None]
